FAERS Safety Report 5248943-3 (Version None)
Quarter: 2007Q1

REPORT INFORMATION
  Report Type: 
  Country: None (occurrence: None)
  Receive Date: 20070223
  Receipt Date: 20070209
  Transmission Date: 20070707
  Serious: Yes (Hospitalization)
  Sender: FDA-Public Use
  Company Number: 220001M07DEU

PATIENT
  Age: 13 Year
  Sex: Male
  Weight: 42 kg

DRUGS (5)
  1. SAIZEN [Suspect]
     Indication: BODY HEIGHT BELOW NORMAL
     Dosage: 2 MG, 1 IN 1 DAYS, SUBCUTANEOUS
     Route: 058
     Dates: start: 20061218, end: 20070123
  2. CYCLOSPORINE [Concomitant]
  3. METHYLPREDNISOLONE [Concomitant]
  4. CELLCEPT [Concomitant]
  5. NEPHROTRANS (SODIUM BICARBONATE) [Concomitant]

REACTIONS (4)
  - BENIGN INTRACRANIAL HYPERTENSION [None]
  - HEADACHE [None]
  - INTRAOCULAR PRESSURE INCREASED [None]
  - NAUSEA [None]
